FAERS Safety Report 18252755 (Version 15)
Quarter: 2020Q4

REPORT INFORMATION
  Report Type: Report from Study
  Country: TR (occurrence: TR)
  Receive Date: 20200910
  Receipt Date: 20201029
  Transmission Date: 20210113
  Serious: Yes (Life-Threatening, Hospitalization)
  Sender: FDA-Public Use
  Company Number: TR-EISAI MEDICAL RESEARCH-EC-2020-080225

PATIENT
  Age: 76 Year
  Sex: Female
  Weight: 78 kg

DRUGS (17)
  1. PEMBROLIZUMAB. [Suspect]
     Active Substance: PEMBROLIZUMAB
     Indication: ENDOMETRIAL CANCER
     Route: 041
     Dates: start: 20200128, end: 20200805
  2. HYZAAR FORT [Concomitant]
     Dates: start: 200401, end: 20200903
  3. LEVOTIRON [Concomitant]
     Active Substance: LEVOTHYROXINE SODIUM
     Dates: start: 20200515
  4. ONDAREN [Concomitant]
     Route: 041
     Dates: start: 20200904, end: 20200904
  5. CARDURA [Concomitant]
     Active Substance: DOXAZOSIN MESYLATE
     Dates: start: 20200603, end: 20200903
  6. GLIFOR [Concomitant]
     Active Substance: METFORMIN HYDROCHLORIDE
     Dates: start: 201505
  7. ZOFER [Concomitant]
     Active Substance: ONDANSETRON HYDROCHLORIDE
     Route: 041
     Dates: start: 20200904, end: 20200904
  8. LENVATINIB [Suspect]
     Active Substance: LENVATINIB
     Route: 048
     Dates: start: 20200829, end: 20200904
  9. NORVASC [Concomitant]
     Active Substance: AMLODIPINE BESYLATE
     Dates: start: 20200904, end: 20200904
  10. KARVEZIDE [Concomitant]
     Active Substance: HYDROCHLOROTHIAZIDE\IRBESARTAN
     Dates: start: 20200331
  11. JEVITY [Concomitant]
     Active Substance: DIETARY SUPPLEMENT
     Dates: start: 20200904, end: 20200904
  12. LENVATINIB [Suspect]
     Active Substance: LENVATINIB
     Indication: ENDOMETRIAL CANCER
     Dosage: STARTING DOSE AT 20 MG, FLUCTUATED DOSES
     Route: 048
     Dates: start: 20200128, end: 20200828
  13. PEMBROLIZUMAB. [Suspect]
     Active Substance: PEMBROLIZUMAB
     Route: 041
     Dates: start: 20200828, end: 20200828
  14. PAROL [Concomitant]
     Active Substance: ACETAMINOPHEN
     Dates: start: 20200504, end: 20200903
  15. BENIPIN [Concomitant]
     Active Substance: BENIDIPINE HYDROCHLORIDE
     Dates: start: 20200603, end: 20200903
  16. DESAL [Concomitant]
     Dates: start: 20200904, end: 20200904
  17. ULCURAN [Concomitant]
     Active Substance: RANITIDINE HYDROCHLORIDE
     Dates: start: 20200904, end: 20200904

REACTIONS (1)
  - Cerebrovascular accident [Recovering/Resolving]

NARRATIVE: CASE EVENT DATE: 20200904
